FAERS Safety Report 9077848 (Version 1)
Quarter: 2013Q1

REPORT INFORMATION
  Report Type: Report from Study
  Country: US (occurrence: US)
  Receive Date: 20130130
  Receipt Date: 20130130
  Transmission Date: 20140127
  Serious: No
  Sender: FDA-Public Use
  Company Number: US-ABBOTT-12P-163-0959543-00

PATIENT
  Age: 37 Year
  Sex: Female

DRUGS (9)
  1. HUMIRA 40 MG/0.8 ML PEN [Suspect]
     Indication: PSORIASIS
     Dosage: INITIAL DOSE
     Dates: start: 20120719, end: 20120719
  2. HUMIRA 40 MG/0.8 ML PEN [Suspect]
     Dates: start: 20120726
  3. METHOTREXATE [Concomitant]
     Indication: PSORIASIS
  4. FOLIC ACID [Concomitant]
     Indication: VITAMIN SUPPLEMENTATION
     Dosage: EXCEPT SATURDAYS
  5. RISPERIDONE [Concomitant]
     Indication: NERVOUSNESS
     Dosage: 10MG DAILY
  6. FISH OIL [Concomitant]
     Indication: MEDICAL DIET
  7. MULTIVITAMINS, COMBINATIONS [Concomitant]
     Indication: VITAMIN SUPPLEMENTATION
  8. ALLERGY RELIEF MEDICINE [Concomitant]
     Indication: PRODUCT USED FOR UNKNOWN INDICATION
  9. CITALOPRAM [Concomitant]
     Indication: NERVOUSNESS
     Dosage: 40MG DAILY

REACTIONS (5)
  - Somnolence [Not Recovered/Not Resolved]
  - Fatigue [Not Recovered/Not Resolved]
  - Feeling hot [Not Recovered/Not Resolved]
  - Hyperhidrosis [Not Recovered/Not Resolved]
  - Blood pressure increased [Not Recovered/Not Resolved]
